FAERS Safety Report 21410112 (Version 2)
Quarter: 2022Q4

REPORT INFORMATION
  Report Type: Spontaneous
  Country: US (occurrence: US)
  Receive Date: 20221005
  Receipt Date: 20221025
  Transmission Date: 20230112
  Serious: No
  Sender: FDA-Public Use
  Company Number: US-BAUSCH-BL-2022-022876

PATIENT
  Age: 50 Year
  Sex: Male
  Weight: 70.370 kg

DRUGS (3)
  1. APLENZIN [Suspect]
     Active Substance: BUPROPION HYDROBROMIDE
     Indication: Depression
     Dosage: APPROXIMATELY STARTED TREATMENT 6 MONTHS AGO
     Route: 048
     Dates: start: 202204, end: 2022
  2. APLENZIN [Suspect]
     Active Substance: BUPROPION HYDROBROMIDE
     Route: 048
     Dates: start: 2022, end: 2022
  3. APLENZIN [Suspect]
     Active Substance: BUPROPION HYDROBROMIDE
     Dosage: DOSE REDUCED
     Route: 048
     Dates: start: 2022

REACTIONS (5)
  - Abdominal discomfort [Recovered/Resolved]
  - Dyspepsia [Recovered/Resolved]
  - Malaise [Recovered/Resolved]
  - Nausea [Recovered/Resolved]
  - Weight decreased [Recovered/Resolved]

NARRATIVE: CASE EVENT DATE: 20220601
